FAERS Safety Report 19404847 (Version 4)
Quarter: 2021Q3

REPORT INFORMATION
  Report Type: Report from Study
  Country: US (occurrence: US)
  Receive Date: 20210611
  Receipt Date: 20210727
  Transmission Date: 20211014
  Serious: Yes (Other)
  Sender: FDA-Public Use
  Company Number: US-UNITED THERAPEUTICS-UNT-2021-010532

PATIENT
  Sex: Female
  Weight: 61.68 kg

DRUGS (5)
  1. TREPROSTINIL SODIUM (INHALED) [Suspect]
     Active Substance: TREPROSTINIL SODIUM
     Indication: PULMONARY ARTERIAL HYPERTENSION
     Dosage: UNK
     Dates: start: 20210601
  2. TREPROSTINIL SODIUM (INHALED) [Suspect]
     Active Substance: TREPROSTINIL SODIUM
     Dosage: 6 ?G
     Dates: start: 2021, end: 202107
  3. OPSUMIT [Concomitant]
     Active Substance: MACITENTAN
     Indication: PULMONARY ARTERIAL HYPERTENSION
     Dosage: 10 MG, QD
     Route: 048
     Dates: end: 202107
  4. TREPROSTINIL SODIUM (INHALED) [Suspect]
     Active Substance: TREPROSTINIL SODIUM
     Dosage: 18?54 ?G, QID
     Dates: start: 2021
  5. SILDENAFIL CITRATE. [Concomitant]
     Active Substance: SILDENAFIL CITRATE
     Indication: PRODUCT USED FOR UNKNOWN INDICATION
     Dosage: UNK
     Route: 065
     Dates: end: 202107

REACTIONS (23)
  - Ascites [Unknown]
  - Rhinorrhoea [Unknown]
  - Dizziness [Unknown]
  - Depression [Unknown]
  - Tremor [Unknown]
  - Cough [Unknown]
  - Upper-airway cough syndrome [Unknown]
  - Nausea [Unknown]
  - Chest discomfort [Unknown]
  - Blood pressure decreased [Unknown]
  - Neck pain [Unknown]
  - Weight increased [Unknown]
  - Fatigue [Unknown]
  - Altered state of consciousness [Unknown]
  - Back pain [Unknown]
  - Dizziness postural [Recovered/Resolved]
  - Nasal congestion [Unknown]
  - Headache [Unknown]
  - Pain in extremity [Unknown]
  - Dyspnoea exertional [Unknown]
  - Anxiety [Unknown]
  - Arthralgia [Unknown]
  - Abdominal distension [Unknown]

NARRATIVE: CASE EVENT DATE: 2021
